FAERS Safety Report 9105020 (Version 1)
Quarter: 2013Q1

REPORT INFORMATION
  Report Type: Spontaneous
  Country: IT (occurrence: IT)
  Receive Date: 20130220
  Receipt Date: 20130220
  Transmission Date: 20140127
  Serious: Yes (Life-Threatening)
  Sender: FDA-Public Use
  Company Number: IT-PFIZER INC-2013062269

PATIENT
  Age: 83 Year
  Sex: Female

DRUGS (3)
  1. DIFLUCAN [Suspect]
     Indication: OROPHARYNGEAL CANDIDIASIS
     Dosage: 100 MG, DAILY
     Route: 048
     Dates: start: 20130201, end: 20130208
  2. WARFARIN SODIUM [Concomitant]
     Dosage: 1 DF, UNK
     Route: 048
  3. SERENASE [Concomitant]
     Route: 048

REACTIONS (2)
  - International normalised ratio abnormal [Recovering/Resolving]
  - Prothrombin consumption time prolonged [Recovering/Resolving]
